FAERS Safety Report 8060745 (Version 2)
Quarter: 2012Q4

REPORT INFORMATION
  Report Type: 
  Country: US (occurrence: US)
  Receive Date: 20110729
  Receipt Date: 20121010
  Transmission Date: 20130627
  Serious: Yes (Other)
  Sender: FDA-Public Use
  Company Number: US-ROCHE-754804

PATIENT
  Age: 19 None
  Sex: Male
  Weight: 60.3 kg

DRUGS (1)
  1. ACCUTANE [Suspect]
     Indication: ACNE
     Route: 065
     Dates: start: 199602, end: 199606

REACTIONS (3)
  - Crohn^s disease [Unknown]
  - Gastrointestinal injury [Unknown]
  - Intestinal obstruction [Unknown]
